FAERS Safety Report 8890036 (Version 4)
Quarter: 2013Q1

REPORT INFORMATION
  Report Type: Spontaneous
  Country: JP (occurrence: JP)
  Receive Date: 20121107
  Receipt Date: 20130213
  Transmission Date: 20140127
  Serious: Yes (Death, Hospitalization)
  Sender: FDA-Public Use
  Company Number: JP-B.I. PHARMACEUTICALS,INC./RIDGEFIELD-2012-BP-27299NB

PATIENT
  Age: 80 Year
  Sex: Male
  Weight: 59 kg

DRUGS (8)
  1. PRADAXA [Suspect]
     Indication: EMBOLIC STROKE
     Dosage: 220 MG
     Route: 048
     Dates: start: 20120620, end: 20121104
  2. NOVASTAN [Suspect]
     Route: 065
  3. UROKINASE [Suspect]
     Route: 065
  4. EPADEL [Concomitant]
     Route: 065
  5. MICARDIS [Concomitant]
     Indication: HYPERTENSION
     Dosage: 40 MG
     Route: 048
     Dates: end: 20121104
  6. URALYT [Concomitant]
     Indication: HYPERURICAEMIA
     Route: 048
     Dates: end: 20121104
  7. AMLODIN OD [Concomitant]
     Indication: HYPERTENSION
     Route: 048
     Dates: end: 20121104
  8. ETHYL ICOSAPENTATE [Concomitant]
     Indication: DYSLIPIDAEMIA
     Dosage: 1800 MG
     Route: 048
     Dates: end: 20121104

REACTIONS (1)
  - Cerebral haemorrhage [Fatal]
